FAERS Safety Report 8816150 (Version 2)
Quarter: 2013Q2

REPORT INFORMATION
  Report Type: Spontaneous
  Country: US (occurrence: US)
  Receive Date: 20120929
  Receipt Date: 20130603
  Transmission Date: 20140414
  Serious: No
  Sender: FDA-Public Use
  Company Number: US-009507513-1209USA011728

PATIENT
  Age: 71 Year
  Sex: Female
  Weight: 55.78 kg

DRUGS (2)
  1. REBETOL [Suspect]
     Indication: HEPATITIS C
     Dosage: UNK
     Route: 048
     Dates: start: 20100326, end: 20110520
  2. PEGASYS [Suspect]
     Indication: HEPATITIS C
     Dosage: UNK
     Dates: start: 20100326, end: 20110520

REACTIONS (8)
  - Hepatitis C [Unknown]
  - Cough [Unknown]
  - Rash [Unknown]
  - Cough [Unknown]
  - Weight decreased [Unknown]
  - Haemoglobin decreased [Unknown]
  - Drug ineffective [Unknown]
  - Therapeutic response decreased [Unknown]
